FAERS Safety Report 7024979-7 (Version None)
Quarter: 2010Q4

REPORT INFORMATION
  Report Type: 
  Country: None (occurrence: None)
  Receive Date: 20101001
  Receipt Date: 20100927
  Transmission Date: 20110411
  Serious: Yes (Other)
  Sender: FDA-Public Use
  Company Number: US-PFIZER INC-2009270495

PATIENT
  Sex: Female
  Weight: 78.9 kg

DRUGS (3)
  1. CHANTIX [Suspect]
     Indication: SMOKING CESSATION THERAPY
     Dosage: 0.5 MG, 1X/DAY
     Route: 048
     Dates: start: 20090902
  2. CHANTIX [Suspect]
     Dosage: 1 MG, 2X/DAY
     Route: 048
  3. ZOLOFT [Concomitant]
     Dosage: 100 MG, 1X/DAY

REACTIONS (2)
  - EYE HAEMORRHAGE [None]
  - WEIGHT INCREASED [None]
